FAERS Safety Report 18729634 (Version 1)
Quarter: 2021Q1

REPORT INFORMATION
  Report Type: Spontaneous
  Country: NL (occurrence: FR)
  Receive Date: 20210112
  Receipt Date: 20210112
  Transmission Date: 20210419
  Serious: Yes (Death)
  Sender: FDA-Public Use
  Company Number: FR-FRESENIUS KABI-FK202100154

PATIENT
  Age: 57 Year
  Sex: Female

DRUGS (4)
  1. PARACETAMOL (MANUFACTURER UNKNOWN) [Suspect]
     Active Substance: ACETAMINOPHEN
     Indication: INTENTIONAL PRODUCT MISUSE
     Dosage: UNKNOWN
     Route: 065
     Dates: end: 2019
  2. OXAZEPAM. [Suspect]
     Active Substance: OXAZEPAM
     Indication: INTENTIONAL PRODUCT MISUSE
     Dosage: UNKNOWN
     Route: 065
     Dates: end: 2019
  3. MIRTAZAPINE. [Suspect]
     Active Substance: MIRTAZAPINE
     Indication: INTENTIONAL PRODUCT MISUSE
     Dosage: UNKNOWN
     Route: 065
     Dates: end: 2019
  4. TRAMADOL HYDROCHLORIDE. [Suspect]
     Active Substance: TRAMADOL HYDROCHLORIDE
     Indication: INTENTIONAL PRODUCT MISUSE
     Dosage: UNKNOWN
     Route: 065
     Dates: end: 2019

REACTIONS (2)
  - Respiratory depression [Fatal]
  - Poisoning deliberate [Fatal]
